FAERS Safety Report 8807563 (Version 1)
Quarter: 2012Q4

REPORT INFORMATION
  Report Type: 
  Country: US (occurrence: US)
  Receive Date: 20120925
  Receipt Date: 20120925
  Transmission Date: 20130627
  Serious: No
  Sender: FDA-Public Use
  Company Number: US-FOUGERA-2012FO001224

PATIENT
  Age: 43 Year
  Sex: Male
  Weight: 92.53 kg

DRUGS (5)
  1. LIDOCAINE + PRILOCAINE [Suspect]
     Indication: CATHETER SITE PAIN
     Route: 061
  2. LIDOCAINE + PRILOCAINE [Suspect]
     Indication: CATHETER SITE PAIN
     Route: 061
  3. METHADONE [Concomitant]
     Indication: SICKLE CELL ANAEMIA
     Route: 048
  4. OXYCODONE [Concomitant]
     Indication: SICKLE CELL ANAEMIA
  5. PERCOCET /00446701/ [Concomitant]
     Indication: SICKLE CELL ANAEMIA

REACTIONS (2)
  - Drug screen positive [Unknown]
  - Expired drug administered [Recovered/Resolved]
